FAERS Safety Report 9965964 (Version 1)
Quarter: 2014Q1

REPORT INFORMATION
  Report Type: Report from Study
  Country: US (occurrence: US)
  Receive Date: 20140305
  Receipt Date: 20140305
  Transmission Date: 20141002
  Serious: No
  Sender: FDA-Public Use
  Company Number: US-ABBVIE-13P-163-1125758-00

PATIENT
  Age: 76 Year
  Sex: Female

DRUGS (8)
  1. HUMIRA [Suspect]
     Indication: COLITIS ULCERATIVE
     Dates: start: 201302
  2. ENALAPRIL [Concomitant]
     Indication: HYPERTENSION
     Dosage: 40MG (X1)
  3. LOPRESSOR [Concomitant]
     Indication: HYPERTENSION
     Dosage: 25MG (1) TWICE DAILY
  4. PRADAXA [Concomitant]
     Indication: ATRIAL FIBRILLATION
     Dosage: 150MG (X1) TWICE DAILY
  5. FLECAINIDE [Concomitant]
     Indication: HEART RATE
     Dosage: 50MG (X1) TWINCE DAILY
  6. FLECAINIDE [Concomitant]
     Indication: ATRIAL FIBRILLATION
  7. CALTRATE D [Concomitant]
     Indication: PRODUCT USED FOR UNKNOWN INDICATION
     Dosage: (X2) DAILY
  8. MULTIVITAMIN [Concomitant]
     Indication: PRODUCT USED FOR UNKNOWN INDICATION
     Dosage: (X1) DAILY

REACTIONS (2)
  - Diarrhoea [Not Recovered/Not Resolved]
  - Abdominal pain [Not Recovered/Not Resolved]
